FAERS Safety Report 15233362 (Version 1)
Quarter: 2018Q3

REPORT INFORMATION
  Report Type: Spontaneous
  Country: CA (occurrence: CA)
  Receive Date: 20180802
  Receipt Date: 20180802
  Transmission Date: 20181010
  Serious: Yes (Other)
  Sender: FDA-Public Use
  Company Number: CA-TEVA-2018-CA-934149

PATIENT
  Sex: Male

DRUGS (5)
  1. COCAINE [Concomitant]
     Active Substance: COCAINE
  2. HYDROMORPHONE [Suspect]
     Active Substance: HYDROMORPHONE
     Indication: DRUG WITHDRAWAL MAINTENANCE THERAPY
     Route: 042
  3. HYDROMORPHONE [Interacting]
     Active Substance: HYDROMORPHONE
     Indication: DRUG DEPENDENCE
  4. CRYSTAL METHAMPHETAMINE [Concomitant]
     Active Substance: METHAMPHETAMINE
  5. FENTANYL. [Concomitant]
     Active Substance: FENTANYL

REACTIONS (5)
  - Dyskinesia [Recovered/Resolved]
  - Dysphemia [Recovered/Resolved]
  - Tremor [Recovered/Resolved]
  - Psychotic disorder [Recovered/Resolved]
  - Drug interaction [Recovered/Resolved]
